FAERS Safety Report 11618750 (Version 2)
Quarter: 2016Q1

REPORT INFORMATION
  Report Type: Spontaneous
  Country: US (occurrence: US)
  Receive Date: 20151012
  Receipt Date: 20160118
  Transmission Date: 20160525
  Serious: Yes (Life-Threatening, Hospitalization, Congenital Anomaly, Other)
  Sender: FDA-Public Use
  Company Number: US-GLENMARK PHARMACEUTICALS INC, USA.-2015GMK019823

PATIENT

DRUGS (1)
  1. ONDANSETRON [Suspect]
     Active Substance: ONDANSETRON
     Indication: PRODUCT USED FOR UNKNOWN INDICATION
     Dosage: UNK
     Route: 064
     Dates: start: 2014, end: 20150102

REACTIONS (6)
  - Double outlet right ventricle [Unknown]
  - Heterotaxia [Unknown]
  - Pulmonary valve stenosis congenital [Unknown]
  - Atrioventricular septal defect [Unknown]
  - Intestinal malrotation [Unknown]
  - Foetal exposure during pregnancy [Unknown]
